FAERS Safety Report 11637787 (Version 2)
Quarter: 2016Q4

REPORT INFORMATION
  Report Type: Spontaneous
  Country: BR (occurrence: BR)
  Receive Date: 20151016
  Receipt Date: 20161115
  Transmission Date: 20170206
  Serious: Yes (Hospitalization, Other)
  Sender: FDA-Public Use
  Company Number: BR-PFIZER INC-2015201264

PATIENT
  Age: 27 Year
  Sex: Female
  Weight: 44 kg

DRUGS (10)
  1. SULFASALAZINE. [Suspect]
     Active Substance: SULFASALAZINE
     Dosage: 1000 MG (2 TABLETS OF 500MG), 2X/DAY (EVERY 12 HOURS)
     Dates: start: 2004, end: 201506
  2. ENBREL [Interacting]
     Active Substance: ETANERCEPT
     Dosage: UNK
  3. FERROUS SULFATE. [Concomitant]
     Active Substance: FERROUS SULFATE
     Indication: ANAEMIA
     Dosage: 109 MG, 1X AT DINNER
     Dates: start: 2013
  4. ENBREL [Interacting]
     Active Substance: ETANERCEPT
     Indication: RHEUMATOID ARTHRITIS
     Dosage: 50 MG, 1X/WEEK (ON WEDNESDAY)
     Route: 030
     Dates: start: 20150610
  5. METHOTREXATE. [Concomitant]
     Active Substance: METHOTREXATE
     Indication: RHEUMATIC DISORDER
     Dosage: 15 MG (6 TABLETS) PER WEEK
     Dates: start: 200404
  6. PREDNISONE. [Concomitant]
     Active Substance: PREDNISONE
     Indication: RHEUMATIC DISORDER
     Dosage: 5 MG, 1X IN THE MORNING
     Route: 048
     Dates: start: 200404
  7. IBUPROFEN. [Concomitant]
     Active Substance: IBUPROFEN
     Indication: PAIN
     Dosage: 600 MG, AS NEEDED
  8. PURAN [Concomitant]
     Active Substance: LEVOTHYROXINE SODIUM
     Indication: HYPOTHYROIDISM
     Dosage: 100 MG, 1X IN THE MORNING
     Dates: start: 1998
  9. ENALAPRIL [Concomitant]
     Active Substance: ENALAPRIL
     Dosage: 10 MG, 2X/DAY (MORNING AND NIGHT)
     Dates: start: 2011
  10. OMEPRAZOLE. [Concomitant]
     Active Substance: OMEPRAZOLE
     Indication: ABDOMINAL DISCOMFORT
     Dosage: 20 MG, 1X/DAY, IN THE MORNING

REACTIONS (5)
  - Headache [Recovered/Resolved]
  - Sneezing [Recovered/Resolved]
  - Vomiting [Recovered/Resolved]
  - Drug interaction [Unknown]
  - Influenza [Recovered/Resolved]

NARRATIVE: CASE EVENT DATE: 201506
